FAERS Safety Report 5114587-7 (Version None)
Quarter: 2006Q3

REPORT INFORMATION
  Report Type: 
  Country: None (occurrence: None)
  Receive Date: 20060922
  Receipt Date: 20060922
  Transmission Date: 20061208
  Serious: Yes (Disabling)
  Sender: FDA-Public Use
  Company Number: None

PATIENT
  Sex: Male
  Weight: 81.6475 kg

DRUGS (2)
  1. DOXYCYCLINE HYCLATE    100MG [Suspect]
     Indication: PROSTATITIS
     Dosage: 100MG   BID   PO
     Route: 048
     Dates: start: 20060810, end: 20060906
  2. NAPROXEN SODIUM [Suspect]
     Indication: PAIN
     Dosage: 500MG  BID    PO
     Route: 048
     Dates: start: 20060810, end: 20060906

REACTIONS (3)
  - INAPPROPRIATE SCHEDULE OF DRUG ADMINISTRATION [None]
  - MEDICATION ERROR [None]
  - OESOPHAGITIS [None]
